FAERS Safety Report 7214626-3 (Version None)
Quarter: 2011Q1

REPORT INFORMATION
  Report Type: 
  Country: None (occurrence: None)
  Receive Date: 20110105
  Receipt Date: 20110105
  Transmission Date: 20110831
  Serious: Yes (Other)
  Sender: FDA-Public Use
  Company Number: None

PATIENT
  Age: 67 Year
  Sex: Female
  Weight: 65.7716 kg

DRUGS (3)
  1. CLINDAMYCIN [Suspect]
     Indication: ORAL INFECTION
     Dosage: 1 CAPSULE TWICE DAILY PO
     Route: 048
     Dates: start: 20101005, end: 20101012
  2. HYDROCODONE [Concomitant]
  3. EUGENOL [Concomitant]

REACTIONS (2)
  - OSTEOARTHRITIS [None]
  - CONDITION AGGRAVATED [None]
